FAERS Safety Report 4656450-1 (Version None)
Quarter: 2005Q2

REPORT INFORMATION
  Report Type: 
  Country: None (occurrence: None)
  Receive Date: 20050505
  Receipt Date: 20050420
  Transmission Date: 20051028
  Serious: Yes (Other)
  Sender: FDA-Public Use
  Company Number: S05-SWI-01568-01

PATIENT
  Age: 33 Year
  Sex: Female

DRUGS (5)
  1. CIPRALEX (ESCITALOPRAM) [Suspect]
     Indication: DEPRESSION
     Dosage: 10 MG QD PO
     Route: 048
     Dates: start: 20041025
  2. TIZANIDINE HCL [Suspect]
     Indication: INJURY
     Dates: start: 20000101
  3. FELDENE [Concomitant]
  4. MEFENAMIC ACID [Concomitant]
  5. XEFO (LORNOXICAM) [Concomitant]

REACTIONS (8)
  - BURNING SENSATION [None]
  - CONDITION AGGRAVATED [None]
  - DIZZINESS [None]
  - DYSPNOEA [None]
  - FATIGUE [None]
  - MUSCULAR WEAKNESS [None]
  - SOMNOLENCE [None]
  - TONGUE DISORDER [None]
